FAERS Safety Report 23549366 (Version 5)
Quarter: 2024Q1

REPORT INFORMATION
  Report Type: Spontaneous
  Country: US (occurrence: US)
  Receive Date: 20240221
  Receipt Date: 20240314
  Transmission Date: 20240410
  Serious: Yes (Other)
  Sender: FDA-Public Use
  Company Number: US-PFIZER INC-202400046405

PATIENT
  Age: 84 Year
  Sex: Female
  Weight: 47.63 kg

DRUGS (2)
  1. PREMPRO [Suspect]
     Active Substance: ESTROGENS, CONJUGATED\MEDROXYPROGESTERONE ACETATE
     Indication: Menopause
     Dosage: 10 MG, 1X/DAY (28 DAYS, 2 DON^T TAKE THEM, ONCE IN DAY)
     Dates: end: 20240105
  2. XANAX [Concomitant]
     Active Substance: ALPRAZOLAM
     Indication: Sleep disorder
     Dosage: [0.25 MG AT NIGHT, TO SLEEP AT NIGHT]

REACTIONS (21)
  - Blindness [Unknown]
  - Withdrawal syndrome [Not Recovered/Not Resolved]
  - Cold-stimulus headache [Not Recovered/Not Resolved]
  - Hyperhidrosis [Unknown]
  - Disturbance in attention [Unknown]
  - Dizziness [Recovering/Resolving]
  - Hot flush [Not Recovered/Not Resolved]
  - Anxiety [Not Recovered/Not Resolved]
  - Agitation [Not Recovered/Not Resolved]
  - Vomiting [Recovering/Resolving]
  - Fall [Unknown]
  - Eye disorder [Unknown]
  - Somnolence [Unknown]
  - Feeling abnormal [Unknown]
  - Hypoaesthesia [Not Recovered/Not Resolved]
  - Loss of personal independence in daily activities [Unknown]
  - Vertigo [Unknown]
  - Dysgraphia [Unknown]
  - Weight decreased [Unknown]
  - Musculoskeletal stiffness [Unknown]
  - Blood oestrogen increased [Unknown]

NARRATIVE: CASE EVENT DATE: 20240105
